FAERS Safety Report 6048988-X (Version None)
Quarter: 2009Q1

REPORT INFORMATION
  Report Type: 
  Country: None (occurrence: None)
  Receive Date: 20090123
  Receipt Date: 20090116
  Transmission Date: 20090719
  Serious: Yes (Other)
  Sender: FDA-Public Use
  Company Number: DE-BRISTOL-MYERS SQUIBB COMPANY-14480776

PATIENT
  Age: 67 Year
  Sex: Female

DRUGS (2)
  1. MITOMYCIN [Suspect]
     Dosage: FORM = INJ
     Dates: start: 20080701, end: 20081001
  2. XELODA [Concomitant]
     Route: 065
     Dates: start: 20080701, end: 20081001

REACTIONS (2)
  - CONNECTIVE TISSUE DISORDER [None]
  - DYSPNOEA EXERTIONAL [None]
